FAERS Safety Report 10998005 (Version 1)
Quarter: 2015Q2

REPORT INFORMATION
  Report Type: Spontaneous
  Country: TR (occurrence: TR)
  Receive Date: 20150408
  Receipt Date: 20150408
  Transmission Date: 20150821
  Serious: Yes (Death)
  Sender: FDA-Public Use
  Company Number: TR-TEVA-552939ISR

PATIENT

DRUGS (1)
  1. GABAPENTIN. [Suspect]
     Active Substance: GABAPENTIN
     Route: 065

REACTIONS (5)
  - Lactic acidosis [Fatal]
  - Septic shock [Fatal]
  - Pneumonia [Fatal]
  - Altered state of consciousness [Fatal]
  - Toxicity to various agents [Fatal]
